FAERS Safety Report 18203433 (Version 1)
Quarter: 2020Q3

REPORT INFORMATION
  Report Type: Spontaneous
  Country: US (occurrence: US)
  Receive Date: 20200827
  Receipt Date: 20200827
  Transmission Date: 20201103
  Serious: No
  Sender: FDA-Public Use
  Company Number: US-NEPHRON PHARMACEUTICALS CORPORATION-2089095

PATIENT
  Age: 88 Year
  Sex: Female
  Weight: 54.55 kg

DRUGS (7)
  1. ALBUTEROL SULFATE INHALATION SOLUTION, 0.083% [Suspect]
     Active Substance: ALBUTEROL SULFATE
     Indication: CHRONIC OBSTRUCTIVE PULMONARY DISEASE
     Route: 055
  2. SUCRALFATE. [Concomitant]
     Active Substance: SUCRALFATE
     Route: 048
  3. METOPROLOL. [Concomitant]
     Active Substance: METOPROLOL
     Route: 048
  4. FAMOTIDINE. [Concomitant]
     Active Substance: FAMOTIDINE
     Route: 048
  5. PULMICORT RESPULES [Concomitant]
     Active Substance: BUDESONIDE
     Route: 055
  6. PROCARDIA XL [Concomitant]
     Active Substance: NIFEDIPINE
     Route: 048
  7. ALPHAGAN P [Concomitant]
     Active Substance: BRIMONIDINE TARTRATE
     Route: 047

REACTIONS (1)
  - Dysgeusia [Recovered/Resolved]
